FAERS Safety Report 5092982-2 (Version None)
Quarter: 2006Q3

REPORT INFORMATION
  Report Type: 
  Country: None (occurrence: None)
  Receive Date: 20060830
  Receipt Date: 20051025
  Transmission Date: 20061208
  Serious: Yes (Life-Threatening, Hospitalization, Disabling, Congenital Anomaly)
  Sender: FDA-Public Use
  Company Number: GB-GLAXOSMITHKLINE-B0398404A

PATIENT
  Age: 18 Month
  Sex: Female
  Weight: 73 kg

DRUGS (2)
  1. COMBIVIR [Suspect]
     Indication: RETROVIRAL INFECTION
     Dates: start: 20040116
  2. NEVIRAPINE [Suspect]
     Indication: RETROVIRAL INFECTION
     Dosage: 200MG TWICE PER DAY
     Dates: start: 20040116

REACTIONS (3)
  - DRUG EXPOSURE DURING PREGNANCY [None]
  - EYE EXCISION [None]
  - RETINOBLASTOMA BILATERAL [None]
